FAERS Safety Report 9963961 (Version 1)
Quarter: 2014Q1

REPORT INFORMATION
  Report Type: Spontaneous
  Country: FR (occurrence: FR)
  Receive Date: 20140305
  Receipt Date: 20140305
  Transmission Date: 20141002
  Serious: Yes (Hospitalization)
  Sender: FDA-Public Use
  Company Number: PHHY2014FR025845

PATIENT
  Age: 27 Year
  Sex: Female

DRUGS (4)
  1. PREDNISOLONE SANDOZ [Suspect]
     Indication: TRACHEITIS
     Dosage: 60 MG, UNK
     Route: 065
     Dates: start: 20121218
  2. JOSACINE [Suspect]
     Indication: TRACHEITIS
     Dosage: 4 DF, DAILY
     Route: 048
     Dates: start: 20121217, end: 20121220
  3. BECOTIDE [Suspect]
     Dosage: 2 DF, BID
     Route: 048
     Dates: start: 20121218, end: 20121220
  4. DOLIPRANE [Suspect]
     Route: 048
     Dates: start: 20121217

REACTIONS (1)
  - Thrombocytopenic purpura [Recovering/Resolving]
